FAERS Safety Report 20524471 (Version 1)
Quarter: 2022Q1

REPORT INFORMATION
  Report Type: Report from Study
  Country: US (occurrence: US)
  Receive Date: 20220228
  Receipt Date: 20220228
  Transmission Date: 20220424
  Serious: Yes (Hospitalization)
  Sender: FDA-Public Use
  Company Number: US-EXELIXIS-CABO-22049336

PATIENT
  Age: 62 Year
  Sex: Male
  Weight: 102.49 kg

DRUGS (15)
  1. CABOMETYX [Suspect]
     Active Substance: CABOZANTINIB S-MALATE
     Indication: Renal cancer
     Dosage: 60 MG, QD
     Route: 048
     Dates: start: 20210429
  2. CABOMETYX [Suspect]
     Active Substance: CABOZANTINIB S-MALATE
     Dosage: 40 MG, QD
     Route: 048
  3. CABOMETYX [Suspect]
     Active Substance: CABOZANTINIB S-MALATE
     Dosage: 20 MG, QD
     Route: 048
     Dates: start: 20220223
  4. LYUMJEV [Concomitant]
     Active Substance: INSULIN LISPRO-AABC
  5. TRESIBA [Concomitant]
     Active Substance: INSULIN DEGLUDEC
  6. VITAMIN D3 [Concomitant]
     Active Substance: CHOLECALCIFEROL
  7. JARDIANCE [Concomitant]
     Active Substance: EMPAGLIFLOZIN
  8. HYDROCHLOROTHIAZIDE [Concomitant]
     Active Substance: HYDROCHLOROTHIAZIDE
  9. LEVOTHYROXINE [Concomitant]
     Active Substance: LEVOTHYROXINE
  10. ASPIRIN [Concomitant]
     Active Substance: ASPIRIN
  11. SIMVASTATIN [Concomitant]
     Active Substance: SIMVASTATIN
  12. HYDROCORTISONE [Concomitant]
     Active Substance: HYDROCORTISONE
  13. LOSARTAN POTASSIUM [Concomitant]
     Active Substance: LOSARTAN POTASSIUM
  14. METFORMIN HYDROCHLORIDE [Concomitant]
     Active Substance: METFORMIN HYDROCHLORIDE
  15. AMLODIPINE BESYLATE [Concomitant]
     Active Substance: AMLODIPINE BESYLATE

REACTIONS (1)
  - Bacterial diarrhoea [Unknown]

NARRATIVE: CASE EVENT DATE: 20210901
